FAERS Safety Report 7075187-5 (Version None)
Quarter: 2010Q4

REPORT INFORMATION
  Report Type: 
  Country: None (occurrence: None)
  Receive Date: 20101029
  Receipt Date: 20100527
  Transmission Date: 20110411
  Serious: No
  Sender: FDA-Public Use
  Company Number: US-WYE-H15474210

PATIENT
  Age: 22 Year
  Sex: Female
  Weight: 65.83 kg

DRUGS (3)
  1. ALAVERT D-12 [Suspect]
     Indication: HYPERSENSITIVITY
     Route: 048
     Dates: start: 20100527, end: 20100527
  2. NORGESTIMATE AND ETHINYL ESTRADIOL [Concomitant]
  3. WELLBUTRIN [Concomitant]

REACTIONS (1)
  - INSOMNIA [None]
